FAERS Safety Report 8387286-6 (Version None)
Quarter: 2012Q2

REPORT INFORMATION
  Report Type: 
  Country: None (occurrence: None)
  Receive Date: 20120525
  Receipt Date: 20120511
  Transmission Date: 20120825
  Serious: Yes (Other)
  Sender: FDA-Public Use
  Company Number: BR-ROCHE-1068794

PATIENT
  Sex: Female
  Weight: 59 kg

DRUGS (5)
  1. ISOTRETINOIN [Suspect]
     Indication: ACNE
     Dosage: DAILY AFTER LUNCH TIME
     Route: 048
     Dates: start: 20091201, end: 20100501
  2. ISOTRETINOIN [Suspect]
     Dates: start: 20120420
  3. DIANE-35 [Concomitant]
  4. ISOTRETINOIN [Suspect]
     Dosage: 6 CAPSULES TAKEN
     Dates: start: 20120327, end: 20120408
  5. ISOTRETINOIN [Suspect]
     Dosage: 2 CAPSULES AFTER LUNCH TIME
     Route: 048

REACTIONS (1)
  - PREGNANCY [None]
